FAERS Safety Report 6839002-4 (Version None)
Quarter: 2010Q3

REPORT INFORMATION
  Report Type: 
  Country: None (occurrence: None)
  Receive Date: 20100713
  Receipt Date: 20090311
  Transmission Date: 20110219
  Serious: Yes (Other)
  Sender: FDA-Public Use
  Company Number: US-PFIZER INC-2007050459

PATIENT
  Sex: Female
  Weight: 57.3 kg

DRUGS (2)
  1. CHANTIX [Suspect]
     Indication: SMOKING CESSATION THERAPY
     Route: 048
     Dates: start: 20070601
  2. ANALGESICS [Concomitant]
     Indication: PAIN
     Route: 048

REACTIONS (7)
  - ABNORMAL DREAMS [None]
  - ASTHENIA [None]
  - FATIGUE [None]
  - NAUSEA [None]
  - PANCREATITIS [None]
  - SOMNOLENCE [None]
  - VOMITING [None]
